FAERS Safety Report 13572057 (Version 1)
Quarter: 2017Q2

REPORT INFORMATION
  Report Type: Other
  Country: US (occurrence: US)
  Receive Date: 20170523
  Receipt Date: 20170523
  Transmission Date: 20170830
  Serious: Yes (Other)
  Sender: FDA-Public Use
  Company Number: US-BIOVITRUM-2014US0206

PATIENT
  Sex: Male

DRUGS (2)
  1. ANAKINRA [Suspect]
     Active Substance: ANAKINRA
     Indication: HYPER IGD SYNDROME
     Dates: start: 200811, end: 200811
  2. ANAKINRA [Suspect]
     Active Substance: ANAKINRA
     Dates: start: 200812, end: 200812

REACTIONS (3)
  - Acute kidney injury [Unknown]
  - Seizure [Unknown]
  - Hypertension [Unknown]

NARRATIVE: CASE EVENT DATE: 200901
